FAERS Safety Report 4526650-X (Version None)
Quarter: 2004Q4

REPORT INFORMATION
  Report Type: 
  Country: None (occurrence: None)
  Receive Date: 20041213
  Receipt Date: 20041129
  Transmission Date: 20050328
  Serious: Yes (Other)
  Sender: FDA-Public Use
  Company Number: 2004103043

PATIENT
  Age: 91 Year
  Sex: Female

DRUGS (6)
  1. TOLTERODINE LA (TOLTERODINE) [Suspect]
     Indication: URINARY INCONTINENCE
     Dosage: 4 MG (4 MG, DAILY), ORAL
     Route: 048
     Dates: start: 20040401, end: 20041101
  2. CELEBREX [Concomitant]
  3. QUININE (QUININE) [Concomitant]
  4. CENTRUM SILVER (ASCORBIC ACID, CALCIUM, MINERALS NOS, RETINOL, TOCOPHE [Concomitant]
  5. CALCIUM (CALCIUM) [Concomitant]
  6. VITAMIN C (VITAMIN C) [Concomitant]

REACTIONS (9)
  - DRUG EFFECT DECREASED [None]
  - DYSPNOEA [None]
  - EYE DISORDER [None]
  - EYE IRRITATION [None]
  - SLEEP DISORDER [None]
  - SPEECH DISORDER [None]
  - UPPER RESPIRATORY TRACT INFLAMMATION [None]
  - VISION BLURRED [None]
  - WEIGHT DECREASED [None]
